FAERS Safety Report 10263454 (Version 1)
Quarter: 2014Q2

REPORT INFORMATION
  Report Type: Spontaneous
  Country: GB (occurrence: GB)
  Receive Date: 20140626
  Receipt Date: 20140626
  Transmission Date: 20141212
  Serious: Yes (Other)
  Sender: FDA-Public Use
  Company Number: GB-ABBVIE-14P-167-1253258-00

PATIENT
  Sex: Female

DRUGS (2)
  1. HUMIRA [Suspect]
     Indication: EXPOSURE VIA BODY FLUID
     Route: 050
     Dates: start: 20120723
  2. HUMIRA [Suspect]
     Indication: FOETAL EXPOSURE DURING PREGNANCY

REACTIONS (1)
  - Abortion spontaneous [Unknown]
